FAERS Safety Report 9462119 (Version 1)
Quarter: 2013Q3

REPORT INFORMATION
  Report Type: Spontaneous
  Country: US (occurrence: None)
  Receive Date: 20130815
  Receipt Date: 20130815
  Transmission Date: 20140515
  Serious: Yes (Hospitalization)
  Sender: FDA-Public Use
  Company Number: None

PATIENT
  Age: 95 Year
  Sex: Female
  Weight: 52 kg

DRUGS (10)
  1. BENAZEPRIL [Suspect]
     Indication: HYPERTENSION
     Dosage: CHRONIC
     Route: 048
  2. CYPROHEPTADINE [Concomitant]
  3. ZOLOFT [Concomitant]
  4. SINEMET [Concomitant]
  5. TYLENOL [Concomitant]
  6. METOPROLOL [Concomitant]
  7. MAXZIDE [Concomitant]
  8. COLACE [Concomitant]
  9. OMEPRAZOLE [Concomitant]
  10. HYDROXYZINE [Concomitant]

REACTIONS (3)
  - Angioedema [None]
  - Swollen tongue [None]
  - Respiratory failure [None]
